FAERS Safety Report 9919787 (Version 2)
Quarter: 2014Q1

REPORT INFORMATION
  Report Type: Spontaneous
  Country: JP (occurrence: JP)
  Receive Date: 20140224
  Receipt Date: 20140311
  Transmission Date: 20141002
  Serious: Yes (Other)
  Sender: FDA-Public Use
  Company Number: JP-GLAXOSMITHKLINE-B0971158A

PATIENT
  Sex: 0

DRUGS (1)
  1. VALTREX [Suspect]
     Indication: HERPES ZOSTER
     Route: 048

REACTIONS (2)
  - Haemorrhage subcutaneous [Not Recovered/Not Resolved]
  - Contusion [Unknown]
